FAERS Safety Report 10428524 (Version 1)
Quarter: 2014Q3

REPORT INFORMATION
  Report Type: Spontaneous
  Country: FR (occurrence: FR)
  Receive Date: 20140903
  Receipt Date: 20140903
  Transmission Date: 20150326
  Serious: Yes (Death, Life-Threatening, Hospitalization)
  Sender: FDA-Public Use
  Company Number: PHHY2014FR111337

PATIENT
  Age: 31 Year
  Sex: Male

DRUGS (4)
  1. DITROPAN [Suspect]
     Active Substance: OXYBUTYNIN CHLORIDE
     Dosage: UNK UKN, UNK
     Route: 048
     Dates: start: 201405, end: 20140622
  2. LEPONEX [Suspect]
     Active Substance: CLOZAPINE
     Dosage: 300 MG IN THE MORNING AND 350 IN THE EVENING (325 MG)
     Dates: end: 20140622
  3. ATARAX [Suspect]
     Active Substance: HYDROXYZINE\HYDROXYZINE HYDROCHLORIDE
     Dosage: 100 MG IN THE MORNING, 100 MG AT NOON AND 50 MG IN THE EVENING
     Route: 048
     Dates: end: 20140622
  4. AKINETON [Suspect]
     Active Substance: BIPERIDEN HYDROCHLORIDE
     Dosage: UNK UKN, UNK
     Route: 048
     Dates: end: 20140622

REACTIONS (3)
  - Loss of consciousness [Fatal]
  - Cardiac arrest [Fatal]
  - Dyskinesia [Fatal]

NARRATIVE: CASE EVENT DATE: 20140622
